FAERS Safety Report 10601575 (Version 1)
Quarter: 2014Q4

REPORT INFORMATION
  Report Type: Spontaneous
  Country: TR (occurrence: TR)
  Receive Date: 20141124
  Receipt Date: 20141124
  Transmission Date: 20150529
  Serious: Yes (Hospitalization)
  Sender: FDA-Public Use
  Company Number: TR-CIPLA LTD.-2014TR01998

PATIENT
  Age: 16 Year
  Sex: Female

DRUGS (1)
  1. AMLODIPINE [Suspect]
     Active Substance: AMLODIPINE BESYLATE
     Dosage: 50 TABLETS OF AMLODIPINE 10 MG (500 MG TOTAL)

REACTIONS (9)
  - Respiratory arrest [Recovered/Resolved]
  - Suicide attempt [Recovered/Resolved]
  - Pyrexia [Recovered/Resolved]
  - Leukocytosis [Unknown]
  - Dyspnoea [Recovered/Resolved]
  - Pulmonary oedema [Recovered/Resolved]
  - Toxicity to various agents [Recovered/Resolved]
  - Sinus tachycardia [Recovered/Resolved]
  - Metabolic alkalosis [Recovered/Resolved]
